FAERS Safety Report 4659914-X (Version None)
Quarter: 2005Q2

REPORT INFORMATION
  Report Type: 
  Country: None (occurrence: None)
  Receive Date: 20050510
  Receipt Date: 20050427
  Transmission Date: 20051028
  Serious: Yes (Death, Other)
  Sender: FDA-Public Use
  Company Number: 2005066827

PATIENT
  Sex: Female

DRUGS (2)
  1. BEXTRA [Suspect]
     Indication: PAIN
     Dates: start: 20030203, end: 20030411
  2. ROFECOXIB [Suspect]
     Indication: ILL-DEFINED DISORDER
     Dates: start: 20000101, end: 20020101

REACTIONS (2)
  - CEREBROVASCULAR ACCIDENT [None]
  - MYOCARDIAL INFARCTION [None]
